FAERS Safety Report 21859303 (Version 5)
Quarter: 2023Q1

REPORT INFORMATION
  Report Type: Spontaneous
  Country: US (occurrence: US)
  Receive Date: 20230113
  Receipt Date: 20230302
  Transmission Date: 20230417
  Serious: Yes (Hospitalization)
  Sender: FDA-Public Use
  Company Number: US-BIOVITRUM-2023US00432

PATIENT
  Age: 14 Month
  Sex: Female

DRUGS (9)
  1. SYNAGIS [Suspect]
     Active Substance: PALIVIZUMAB
     Indication: Product used for unknown indication
  2. FLUTICASONE PROPIONATE [Suspect]
     Active Substance: FLUTICASONE PROPIONATE
     Dosage: 44 MCG/ACTUATION HFA AEROSOL INHALER (1 PUFF INHALED 2 TIMES A DAY)
  3. FUROSEMIDE [Concomitant]
     Active Substance: FUROSEMIDE
     Dosage: FUROSEMIDE 10 MG/ML ORAL SOLUTION (0.5ML BY GASTROSTOMY TUBE BID.)
  4. GLYCERIN [Concomitant]
     Active Substance: GLYCERIN
     Dosage: GLYCERIN (CHILD) RECTAL SUPPOSITORY ((1/4 SUPPOSITORY) RECTALLY EVERY 4 HOURS AS NEEDED FOR CONSTIPA
  5. ENALAPRIL MALEATE [Concomitant]
     Active Substance: ENALAPRIL MALEATE
     Dosage: 1 MG/ML ORAL SOLUTION (1.1 MG BY G-TUBE ONCE DAILY)
  6. OMEPRAZOLE [Concomitant]
     Active Substance: OMEPRAZOLE
     Dosage: OMEPRAZOLE 2 MG/ML ORAL SUSPENSION COMPOUNDING KIT (5 ML VIA G-TUBE ONCE QAM FOR REFLUX.)
  7. ATROVENT HFA [Concomitant]
     Active Substance: IPRATROPIUM BROMIDE
     Dosage: 17 MCG/ACTUATION AEROSOL INHALER (1 PUFF BY METERED DOSE INHALER 2 TIMES A DAY AS NEEDED FOR ALLERGY
  8. POLYETHYLENE GLYCOL 3350 [Concomitant]
     Active Substance: POLYETHYLENE GLYCOL 3350
     Dosage: 4.25 GRAM ORAL POWDER PACKET (BY G-TUBE 2 TIMES A DAY PRN FOR CONSTIPATION
  9. SIMETHICONE (DIMETHICONE) [Concomitant]
     Active Substance: DIMETHICONE
     Dosage: 40 MG/0.6 ML ORAL DROPS, SUSPENSION (0.3ML BY GTUBE EVERY 6 HOURS AS NEEDED FOR STOMACH PAIN

REACTIONS (4)
  - COVID-19 [Recovered/Resolved]
  - Respiratory syncytial virus infection [Recovered/Resolved]
  - Vomiting [Not Recovered/Not Resolved]
  - Product dose omission issue [Unknown]

NARRATIVE: CASE EVENT DATE: 20221101
